FAERS Safety Report 22160687 (Version 1)
Quarter: 2023Q1

REPORT INFORMATION
  Report Type: Spontaneous
  Country: US (occurrence: US)
  Receive Date: 20230331
  Receipt Date: 20230331
  Transmission Date: 20230418
  Serious: No
  Sender: FDA-Public Use
  Company Number: US-BRISTOL-MYERS SQUIBB COMPANY-2023-046539

PATIENT
  Age: 75 Year
  Sex: Male

DRUGS (2)
  1. REVLIMID [Suspect]
     Active Substance: LENALIDOMIDE
     Indication: Neoplasm
     Dosage: FREQUENCY: 21 DAYS ON 7 DAYS OFF
     Route: 048
     Dates: start: 20230126
  2. REVLIMID [Suspect]
     Active Substance: LENALIDOMIDE
     Route: 048

REACTIONS (2)
  - Neutrophil count increased [Unknown]
  - Platelet count increased [Unknown]

NARRATIVE: CASE EVENT DATE: 20230328
